FAERS Safety Report 11429135 (Version 1)
Quarter: 2015Q3

REPORT INFORMATION
  Report Type: Spontaneous
  Country: US (occurrence: US)
  Receive Date: 20150828
  Receipt Date: 20150828
  Transmission Date: 20151125
  Serious: No
  Sender: FDA-Public Use
  Company Number: US-ROCHE-1147391

PATIENT
  Sex: Female

DRUGS (2)
  1. PEGASYS [Suspect]
     Active Substance: PEGINTERFERON ALFA-2A
     Indication: CHRONIC HEPATITIS C
     Route: 058
     Dates: start: 20100101, end: 20100715
  2. COPEGUS [Suspect]
     Active Substance: RIBAVIRIN
     Indication: CHRONIC HEPATITIS C
     Route: 048
     Dates: start: 20100101, end: 20100715

REACTIONS (8)
  - Gingival oedema [Not Recovered/Not Resolved]
  - Product quality issue [Unknown]
  - Device breakage [Recovering/Resolving]
  - Nasal ulcer [Not Recovered/Not Resolved]
  - Lip oedema [Not Recovered/Not Resolved]
  - Tooth loss [Not Recovered/Not Resolved]
  - Stomatitis [Not Recovered/Not Resolved]
  - Mouth swelling [Recovering/Resolving]
